FAERS Safety Report 24217489 (Version 1)
Quarter: 2024Q3

REPORT INFORMATION
  Report Type: Spontaneous
  Country: US (occurrence: US)
  Receive Date: 20240816
  Receipt Date: 20240816
  Transmission Date: 20241017
  Serious: No
  Sender: BRISTOL MYERS SQUIBB
  Company Number: US-BRISTOL-MYERS SQUIBB COMPANY-2024-127787

PATIENT
  Age: 80 Year
  Sex: Female

DRUGS (1)
  1. LENALIDOMIDE [Suspect]
     Active Substance: LENALIDOMIDE
     Indication: Immune system disorder
     Route: 048

REACTIONS (4)
  - Pruritus [Recovering/Resolving]
  - Headache [Recovering/Resolving]
  - Night sweats [Recovering/Resolving]
  - Off label use [Unknown]
